FAERS Safety Report 7329311-7 (Version None)
Quarter: 2011Q1

REPORT INFORMATION
  Report Type: 
  Country: None (occurrence: None)
  Receive Date: 20110228
  Receipt Date: 20110228
  Transmission Date: 20110831
  Serious: Yes (Life-Threatening, Hospitalization, Disabling)
  Sender: FDA-Public Use
  Company Number: None

PATIENT
  Age: 48 Year
  Sex: Male
  Weight: 88.4514 kg

DRUGS (2)
  1. ADVAIR DISKUS 100/50 [Concomitant]
  2. LYRICA [Suspect]
     Indication: CERVICOBRACHIAL SYNDROME
     Dosage: ONE THREE TIMES DAILY PO
     Route: 048

REACTIONS (7)
  - RESPIRATORY RATE INCREASED [None]
  - WHEEZING [None]
  - HEART RATE INCREASED [None]
  - THROAT TIGHTNESS [None]
  - BLOOD PRESSURE DECREASED [None]
  - FLUSHING [None]
  - SWELLING [None]
